FAERS Safety Report 5615114-8 (Version None)
Quarter: 2008Q1

REPORT INFORMATION
  Report Type: 
  Country: None (occurrence: None)
  Receive Date: 20080206
  Receipt Date: 20070525
  Transmission Date: 20080703
  Serious: No
  Sender: FDA-Public Use
  Company Number: A0653002A

PATIENT
  Age: 60 Year
  Sex: Male

DRUGS (5)
  1. ARIXTRA [Suspect]
     Dosage: 2.5MG PER DAY
     Route: 058
     Dates: start: 20070516
  2. ANTIBIOTIC [Concomitant]
  3. BUPROPION HCL [Concomitant]
  4. ADDERALL 10 [Concomitant]
  5. ASPIRIN [Concomitant]

REACTIONS (2)
  - FATIGUE [None]
  - MIDDLE INSOMNIA [None]
